FAERS Safety Report 9973757 (Version 2)
Quarter: 2014Q1

REPORT INFORMATION
  Report Type: Spontaneous
  Country: US (occurrence: US)
  Receive Date: 20140306
  Receipt Date: 20140306
  Transmission Date: 20141002
  Serious: No
  Sender: FDA-Public Use
  Company Number: US-GILEAD-2012-0058199

PATIENT
  Age: 30 Year
  Sex: Male
  Weight: 71.66 kg

DRUGS (4)
  1. VIREAD [Suspect]
     Indication: HEPATITIS B
     Dosage: UNK
     Dates: start: 201007, end: 2010
  2. VIREAD [Suspect]
     Dosage: UNK
     Dates: start: 201207
  3. ADEFOVIR [Concomitant]
     Indication: HEPATITIS B
  4. LAMIVUDINE [Concomitant]

REACTIONS (2)
  - Myalgia [Recovered/Resolved]
  - Pruritus [Recovered/Resolved]
